FAERS Safety Report 7789515-6 (Version None)
Quarter: 2011Q3

REPORT INFORMATION
  Report Type: 
  Country: None (occurrence: None)
  Receive Date: 20110930
  Receipt Date: 20110923
  Transmission Date: 20111222
  Serious: Yes (Other)
  Sender: FDA-Public Use
  Company Number: IT-CUBIST-2011S1000631

PATIENT
  Age: 55 Year
  Sex: Male

DRUGS (1)
  1. CUBICIN [Suspect]
     Indication: PRODUCT USED FOR UNKNOWN INDICATION
     Dosage: DOSE UNIT:U UNKNOWN
     Route: 065

REACTIONS (4)
  - GASTRITIS [None]
  - RASH [None]
  - HEPATITIS [None]
  - EOSINOPHILIC PNEUMONIA [None]
